FAERS Safety Report 6158748-7 (Version None)
Quarter: 2009Q2

REPORT INFORMATION
  Report Type: 
  Country: None (occurrence: None)
  Receive Date: 20090417
  Receipt Date: 20090409
  Transmission Date: 20091009
  Serious: Yes (Congenital Anomaly)
  Sender: FDA-Public Use
  Company Number: B0541423A

PATIENT
  Weight: 3 kg

DRUGS (2)
  1. PAXIL [Suspect]
     Indication: PANIC ATTACK
     Dates: end: 20080109
  2. SOLANAX [Concomitant]
     Indication: PANIC ATTACK

REACTIONS (3)
  - CARDIAC MURMUR [None]
  - DRUG EXPOSURE DURING PREGNANCY [None]
  - VENTRICULAR SEPTAL DEFECT [None]
